FAERS Safety Report 5741254-9 (Version None)
Quarter: 2008Q2

REPORT INFORMATION
  Report Type: 
  Country: None (occurrence: None)
  Receive Date: 20080514
  Receipt Date: 20080508
  Transmission Date: 20081010
  Serious: Yes (Hospitalization, Other)
  Sender: FDA-Public Use
  Company Number: 2008SP001102

PATIENT
  Age: 44 Year
  Sex: Male

DRUGS (8)
  1. LUNESTA [Suspect]
     Dosage: ORAL
     Route: 048
  2. NADOLOL [Concomitant]
  3. LISINOPRIL [Concomitant]
  4. HYDROCHLOROTHIAZIDE [Concomitant]
  5. NEXIUM [Concomitant]
  6. ALLOPURINOL [Concomitant]
  7. NORVASC [Concomitant]
  8. LEXAPRO [Concomitant]

REACTIONS (6)
  - ASTHENIA [None]
  - DIALYSIS [None]
  - FATIGUE [None]
  - NEPHRITIS INTERSTITIAL [None]
  - ORAL INTAKE REDUCED [None]
  - RENAL TUBULAR NECROSIS [None]
